FAERS Safety Report 4556802-4 (Version None)
Quarter: 2005Q1

REPORT INFORMATION
  Report Type: 
  Country: None (occurrence: None)
  Receive Date: 20050103
  Receipt Date: 20041011
  Transmission Date: 20050727
  Serious: Yes (Hospitalization)
  Sender: FDA-Public Use
  Company Number: 2004UW16373

PATIENT
  Age: 58 Year
  Sex: Male
  Weight: 118.8424 kg

DRUGS (9)
  1. CRESTOR [Suspect]
     Indication: HYPERLIPIDAEMIA
     Dosage: 10 MG PO
     Route: 048
     Dates: start: 20040501, end: 20040626
  2. LEVOTHYROXINE SODIUM [Concomitant]
  3. NORVASC [Concomitant]
  4. PREDNISONE [Concomitant]
  5. NO MATCH [Concomitant]
  6. PROZAC [Concomitant]
  7. VICODIN [Concomitant]
  8. ZETIA [Concomitant]
  9. SYNTHROID [Concomitant]

REACTIONS (2)
  - CHEST PAIN [None]
  - HEPATIC ENZYME INCREASED [None]
